FAERS Safety Report 7901289-4 (Version None)
Quarter: 2011Q4

REPORT INFORMATION
  Report Type: 
  Country: None (occurrence: None)
  Receive Date: 20111108
  Receipt Date: 20111101
  Transmission Date: 20120403
  Serious: Yes (Death, Hospitalization)
  Sender: FDA-Public Use
  Company Number: PHHY2010NL59928

PATIENT
  Sex: Male

DRUGS (13)
  1. ZOMETA [Suspect]
     Dosage: 4 MG/5 ML
     Route: 042
     Dates: start: 20110816
  2. ZOMETA [Suspect]
     Dosage: 4 MG/ 5 ML
     Route: 042
     Dates: start: 20110926
  3. METOCLOPRAMIDE [Concomitant]
  4. OXAZEPAM [Concomitant]
  5. ACETAMINOPHEN [Concomitant]
  6. ZOMETA [Suspect]
     Dosage: 4 MG/5 ML
     Route: 042
     Dates: start: 20100907
  7. OMEPRAZOLE [Concomitant]
  8. ZOMETA [Suspect]
     Dosage: 4 MG/5 ML
     Route: 042
     Dates: start: 20100616
  9. PREDNISONE [Concomitant]
  10. ZOLADEX [Concomitant]
  11. ZOMETA [Suspect]
     Indication: PROSTATE CANCER METASTATIC
     Dosage: 4 MG/5 ML
     Route: 042
     Dates: start: 20090608
  12. MORPHINE [Concomitant]
  13. PCM [Concomitant]

REACTIONS (6)
  - CENTRAL NERVOUS SYSTEM LESION [None]
  - GAIT DISTURBANCE [None]
  - NEOPLASM PROGRESSION [None]
  - BACK PAIN [None]
  - NEOPLASM MALIGNANT [None]
  - GENERAL PHYSICAL HEALTH DETERIORATION [None]
